FAERS Safety Report 4526935-7 (Version None)
Quarter: 2004Q4

REPORT INFORMATION
  Report Type: 
  Country: None (occurrence: None)
  Receive Date: 20041208
  Receipt Date: 20041124
  Transmission Date: 20050328
  Serious: Yes (Other)
  Sender: FDA-Public Use
  Company Number: 2004-03821

PATIENT
  Sex: Male

DRUGS (1)
  1. IMMUCYST (BCG - IT (CONNAUGHT)),AVENTIS PASTEUR LTD.,LOT NOT REP,I [Suspect]
     Indication: BLADDER CANCER
     Dosage: B.IN.
     Route: 043

REACTIONS (1)
  - BOVINE TUBERCULOSIS [None]
